FAERS Safety Report 6265281-0 (Version None)
Quarter: 2009Q3

REPORT INFORMATION
  Report Type: 
  Country: None (occurrence: None)
  Receive Date: 20090709
  Receipt Date: 20090709
  Transmission Date: 20100115
  Serious: No
  Sender: FDA-Public Use
  Company Number: None

PATIENT
  Age: 25 Year
  Sex: Female
  Weight: 92.0802 kg

DRUGS (2)
  1. CLARITHROMYCIN [Suspect]
     Indication: OTITIS MEDIA
     Dosage: 500 MG TWICE DAILY PO
     Route: 048
     Dates: start: 20090630, end: 20090707
  2. CLARITHROMYCIN [Suspect]
     Indication: PHARYNGITIS STREPTOCOCCAL
     Dosage: 500 MG TWICE DAILY PO
     Route: 048
     Dates: start: 20090630, end: 20090707

REACTIONS (5)
  - DRUG DOSE OMISSION [None]
  - DRY MOUTH [None]
  - DYSGEUSIA [None]
  - INSOMNIA [None]
  - PARAESTHESIA [None]
